FAERS Safety Report 6745938-5 (Version None)
Quarter: 2010Q2

REPORT INFORMATION
  Report Type: 
  Country: None (occurrence: None)
  Receive Date: 20100528
  Receipt Date: 20100514
  Transmission Date: 20101027
  Serious: Yes (Hospitalization)
  Sender: FDA-Public Use
  Company Number: ES-ELI_LILLY_AND_COMPANY-ES201005003891

PATIENT
  Sex: Female
  Weight: 60 kg

DRUGS (14)
  1. FORTEO [Suspect]
     Indication: OSTEOPOROSIS
     Dosage: 20 UG, DAILY (1/D)
     Route: 058
  2. OMEPRAZOLE [Concomitant]
     Indication: GASTRIC DISORDER
     Dosage: UNK, DAILY (1/D)
     Route: 048
  3. CIPROFLOXACIN [Concomitant]
     Indication: POSTOPERATIVE WOUND INFECTION
     Dosage: 500 MG, 2/D
     Route: 048
  4. ESERTIA [Concomitant]
     Indication: DEPRESSION
     Dosage: 10 D/F, DAILY (1/D)
     Route: 048
  5. FERROGRADUMET [Concomitant]
     Indication: BLOOD IRON
     Dosage: UNK, DAILY (1/D)
     Route: 048
  6. NORVASC [Concomitant]
     Indication: HYPERTENSION
     Dosage: 5 D/F, DAILY (1/D)
     Route: 048
  7. GABAPENTIN [Concomitant]
     Dosage: 400 D/F, 2/D
     Route: 048
  8. REXER [Concomitant]
     Indication: DEPRESSION
     Dosage: 15 D/F, DAILY (1/D)
     Route: 048
  9. PLANTABEN [Concomitant]
     Dosage: UNK, AS NEEDED
     Route: 048
  10. OXYCONTIN [Concomitant]
     Dosage: UNK, 2/D
     Route: 048
  11. OXYCODONE HCL [Concomitant]
     Dosage: UNK, AS NEEDED
     Route: 048
  12. DISTRANEURINE [Concomitant]
     Dosage: UNK, 2/D
     Route: 048
  13. ENOXAPARIN SODIUM [Concomitant]
     Indication: THROMBOSIS PROPHYLAXIS
     Route: 058
  14. BONIVA [Concomitant]
     Indication: OSTEOPOROSIS
     Dosage: UNK, MONTHLY (1/M)
     Route: 048

REACTIONS (2)
  - MEDICAL DEVICE COMPLICATION [None]
  - NOSOCOMIAL INFECTION [None]
